FAERS Safety Report 7928255-7 (Version None)
Quarter: 2011Q4

REPORT INFORMATION
  Report Type: 
  Country: None (occurrence: None)
  Receive Date: 20111118
  Receipt Date: 20111109
  Transmission Date: 20120403
  Serious: Yes (Death)
  Sender: FDA-Public Use
  Company Number: JP-EISAI INC-E7389-01417-SPO-JP

PATIENT
  Sex: Female
  Weight: 39 kg

DRUGS (3)
  1. ALDACTONE [Concomitant]
     Route: 048
     Dates: start: 20110705, end: 20110819
  2. HALAVEN [Suspect]
     Indication: BREAST CANCER RECURRENT
     Route: 041
     Dates: start: 20110812, end: 20110812
  3. LASIX [Concomitant]
     Route: 048
     Dates: start: 20110705, end: 20110819

REACTIONS (3)
  - BONE MARROW FAILURE [None]
  - HYPERBILIRUBINAEMIA [None]
  - DISSEMINATED INTRAVASCULAR COAGULATION [None]
